FAERS Safety Report 8686917 (Version 2)
Quarter: 2013Q1

REPORT INFORMATION
  Report Type: Spontaneous
  Country: US (occurrence: None)
  Receive Date: 20120412
  Receipt Date: 20120412
  Transmission Date: 20140127
  Serious: Yes (Death)
  Sender: FDA-Public Use
  Company Number: 119996

PATIENT
  Age: 61 Year
  Sex: Female

DRUGS (2)
  1. ADRIAMYCIN [Suspect]
  2. BLEOMYCIN SULFATE [Suspect]

REACTIONS (1)
  - DEATH [None]
